FAERS Safety Report 8958142 (Version 1)
Quarter: 2012Q4

REPORT INFORMATION
  Report Type: Report from Study
  Country: US (occurrence: US)
  Receive Date: 20121211
  Receipt Date: 20121211
  Transmission Date: 20130627
  Serious: Yes (Hospitalization)
  Sender: FDA-Public Use
  Company Number: US-JNJFOC-20080600083

PATIENT
  Age: 60 Year
  Sex: Male
  Weight: 100.1 kg

DRUGS (13)
  1. DOXORUBICIN HYDROCHLORIDE (DOXIL) [Suspect]
     Indication: MULTIPLE MYELOMA
     Dosage: cycle 2
     Route: 042
     Dates: start: 20080519, end: 20080519
  2. REVLIMID [Suspect]
     Indication: MULTIPLE MYELOMA
     Dosage: cycle 2
     Route: 048
     Dates: start: 20080519, end: 20080525
  3. DEXAMETHASONE [Suspect]
     Indication: MULTIPLE MYELOMA
     Dosage: cycle 2
     Route: 048
     Dates: start: 20080519, end: 20080522
  4. ZOCOR [Concomitant]
     Route: 065
  5. LISINOPRIL [Concomitant]
     Route: 065
  6. ASACOL [Concomitant]
     Route: 065
  7. MULTIVITAMIN [Concomitant]
     Route: 065
  8. TIAGABINE [Concomitant]
     Route: 065
  9. NEURONTIN [Concomitant]
     Route: 065
  10. ASPIRIN [Concomitant]
     Route: 065
  11. ACYCLOVIR [Concomitant]
     Route: 065
  12. PROTONIX [Concomitant]
     Route: 065
  13. METOPROLOL [Concomitant]
     Route: 065

REACTIONS (2)
  - Systemic inflammatory response syndrome [Recovered/Resolved]
  - Pyrexia [Recovered/Resolved]
